FAERS Safety Report 25776959 (Version 1)
Quarter: 2025Q3

REPORT INFORMATION
  Report Type: Report from Study
  Country: KR (occurrence: KR)
  Receive Date: 20250909
  Receipt Date: 20250909
  Transmission Date: 20251021
  Serious: Yes (Other)
  Sender: ABBVIE
  Company Number: KR-ABBVIE-6448237

PATIENT
  Age: 79 Year
  Sex: Male
  Weight: 70 kg

DRUGS (33)
  1. VENCLEXTA [Suspect]
     Active Substance: VENETOCLAX
     Indication: Acute myeloid leukaemia
     Dosage: LAST ADMIN DATE 2025
     Route: 048
     Dates: start: 20250808
  2. VENCLEXTA [Suspect]
     Active Substance: VENETOCLAX
     Indication: Acute myeloid leukaemia
     Route: 048
     Dates: start: 20250713, end: 20250714
  3. VENCLEXTA [Suspect]
     Active Substance: VENETOCLAX
     Indication: Acute myeloid leukaemia
     Route: 048
     Dates: start: 20250725, end: 20250725
  4. VENCLEXTA [Suspect]
     Active Substance: VENETOCLAX
     Indication: Acute myeloid leukaemia
     Route: 048
     Dates: start: 20250712, end: 20250712
  5. VENCLEXTA [Suspect]
     Active Substance: VENETOCLAX
     Indication: Acute myeloid leukaemia
     Route: 048
     Dates: start: 20250711, end: 20250711
  6. VENCLEXTA [Suspect]
     Active Substance: VENETOCLAX
     Indication: Acute myeloid leukaemia
     Route: 048
     Dates: start: 20250710, end: 20250710
  7. ALLOPURINOL [Concomitant]
     Active Substance: ALLOPURINOL
     Indication: Prophylaxis
     Route: 048
     Dates: start: 20250709, end: 20250714
  8. HEPA MERZ [Concomitant]
     Indication: Liver function test increased
     Dosage: INJ 500MG/5ML
     Route: 042
     Dates: start: 20250721, end: 20250728
  9. HERBALS [Concomitant]
     Active Substance: HERBALS
     Indication: Dyspepsia
     Route: 048
     Dates: start: 20250724, end: 20250806
  10. AMOSARTAN [Concomitant]
     Indication: Hypertension
     Dosage: TAB 5/50MG
     Route: 048
     Dates: start: 20250707
  11. FEROBA YOU SR [Concomitant]
     Indication: Anaemia
     Route: 048
     Dates: start: 20250707
  12. VIZADAKIN [Concomitant]
     Indication: Acute myeloid leukaemia
     Route: 042
     Dates: start: 20250903
  13. VIZADAKIN [Concomitant]
     Indication: Acute myeloid leukaemia
     Route: 042
     Dates: start: 20250710, end: 20250714
  14. VACRAX [Concomitant]
     Indication: Infection prophylaxis
     Route: 048
     Dates: start: 20250709
  15. SULFAMETHOXAZOLE\TRIMETHOPRIM [Concomitant]
     Active Substance: SULFAMETHOXAZOLE\TRIMETHOPRIM
     Indication: Infection prophylaxis
     Route: 048
     Dates: start: 20250709
  16. VENITOL [Concomitant]
     Indication: Haemorrhoids
     Route: 048
     Dates: start: 20250724
  17. TAZOPERAN [Concomitant]
     Indication: Pyrexia
     Route: 042
     Dates: start: 20250711, end: 20250714
  18. FEXORIN [Concomitant]
     Indication: Renal disorder prophylaxis
     Route: 048
     Dates: start: 20250707
  19. FEDULOW [Concomitant]
     Indication: Prophylaxis
     Dosage: SUSP
     Route: 048
     Dates: start: 20250722
  20. LEVOPRIDE [Concomitant]
     Indication: Dyspepsia
     Route: 048
     Dates: start: 20250723, end: 20250806
  21. ENCOVER SOLN [Concomitant]
     Indication: Decreased appetite
     Route: 048
     Dates: start: 20250724, end: 20250806
  22. NEXIUM I.V. [Concomitant]
     Active Substance: ESOMEPRAZOLE SODIUM
     Indication: Gastrointestinal disorder prophylaxis
     Route: 042
     Dates: start: 20250716, end: 20250806
  23. MAXIPIME [Concomitant]
     Active Substance: CEFEPIME HYDROCHLORIDE
     Indication: Pyrexia
     Route: 042
     Dates: start: 20250714, end: 20250731
  24. CACEPIN [Concomitant]
     Indication: Insomnia
     Route: 048
     Dates: start: 20250711
  25. PROPACETAMOL HYDROCHLORIDE [Concomitant]
     Active Substance: PROPACETAMOL HYDROCHLORIDE
     Indication: Pyrexia
     Route: 042
     Dates: start: 20250713, end: 20250715
  26. TYLICOL [Concomitant]
     Indication: Pyrexia
     Route: 042
     Dates: start: 20250711, end: 20250716
  27. MOSAPRIDE CITRATE [Concomitant]
     Active Substance: MOSAPRIDE CITRATE
     Indication: Dyspepsia
     Route: 048
     Dates: start: 20250724, end: 20250806
  28. NOXAFIL [Concomitant]
     Active Substance: POSACONAZOLE
     Indication: Infection prophylaxis
     Dosage: GASTRO RESISTANT TAB 100MG
     Route: 048
     Dates: start: 20250709
  29. GODEX [Concomitant]
     Indication: Liver function test increased
     Route: 048
     Dates: start: 20250721, end: 20250728
  30. HARNAL [Concomitant]
     Active Substance: TAMSULOSIN HYDROCHLORIDE
     Indication: Benign prostatic hyperplasia
     Route: 048
     Dates: start: 20250707
  31. URSODIOL [Concomitant]
     Active Substance: URSODIOL
     Indication: Liver function test increased
     Route: 048
     Dates: start: 20250721, end: 20250728
  32. CRESTOR [Concomitant]
     Active Substance: ROSUVASTATIN CALCIUM
     Indication: Dyslipidaemia
     Route: 048
     Dates: start: 20250707
  33. LEVOFLOXACIN [Concomitant]
     Active Substance: LEVOFLOXACIN
     Indication: Infection prophylaxis
     Route: 048
     Dates: start: 20250709

REACTIONS (1)
  - Renal tubular necrosis [Recovered/Resolved]

NARRATIVE: CASE EVENT DATE: 20250714
